FAERS Safety Report 4610212-X (Version None)
Quarter: 2005Q1

REPORT INFORMATION
  Report Type: 
  Country: None (occurrence: None)
  Receive Date: 20050314
  Receipt Date: 20050303
  Transmission Date: 20050727
  Serious: Yes (Hospitalization)
  Sender: FDA-Public Use
  Company Number: 2004-BP-12113NB

PATIENT
  Age: 69 Year
  Sex: Male

DRUGS (4)
  1. MOBIC [Suspect]
     Indication: BACK PAIN
     Dosage: 10 MG
     Route: 048
     Dates: start: 20040405, end: 20041105
  2. GLIMICRON (GLICLAZIDE) [Suspect]
     Indication: DIABETES MELLITUS
     Dosage: 40 MG
     Route: 048
     Dates: start: 20031110, end: 20041105
  3. SOLON (SOFALCONE) [Suspect]
     Indication: GASTRITIS
     Dosage: 50 MG
     Route: 048
     Dates: start: 20030405, end: 20041105
  4. PREDONIN [Suspect]
     Indication: FACIAL PALSY
     Dosage: 60 MG
     Route: 048
     Dates: start: 20040927, end: 20041001

REACTIONS (2)
  - FACIAL PALSY [None]
  - INTERSTITIAL LUNG DISEASE [None]
